FAERS Safety Report 10202632 (Version 2)
Quarter: 2014Q2

REPORT INFORMATION
  Report Type: Spontaneous
  Country: US (occurrence: US)
  Receive Date: 20140528
  Receipt Date: 20140603
  Transmission Date: 20141212
  Serious: No
  Sender: FDA-Public Use
  Company Number: US-BAYER-2014-075220

PATIENT
  Age: 85 Year
  Sex: Male
  Weight: 61 kg

DRUGS (2)
  1. ALEVE CAPLET [Suspect]
     Indication: FRACTURE PAIN
     Dosage: 2 DF, BID
     Route: 048
     Dates: start: 2013
  2. CITRACAL CALCIUM + D SLOW RELEASE 1200 [Concomitant]

REACTIONS (1)
  - Incorrect dose administered [None]
